FAERS Safety Report 7978682-7 (Version None)
Quarter: 2011Q4

REPORT INFORMATION
  Report Type: 
  Country: None (occurrence: None)
  Receive Date: 20111129
  Receipt Date: 20110810
  Transmission Date: 20120403
  Serious: No
  Sender: FDA-Public Use
  Company Number: PHEH2011US01405

PATIENT
  Age: 59 Year
  Sex: Male
  Weight: 106.6 kg

DRUGS (7)
  1. LOVAZA [Concomitant]
  2. AFINITOR [Suspect]
     Dosage: 10 MG, EVERY DAY, ORAL
     Route: 048
  3. ASPIRIN [Concomitant]
  4. METOPROLOL TARTRATE [Concomitant]
  5. LANTUS [Concomitant]
  6. AMOXICILLIN [Concomitant]
  7. CRESTOR [Concomitant]

REACTIONS (1)
  - PHARYNGITIS [None]
